FAERS Safety Report 10080051 (Version 4)
Quarter: 2014Q3

REPORT INFORMATION
  Report Type: Spontaneous
  Country: BR (occurrence: BR)
  Receive Date: 20140415
  Receipt Date: 20140717
  Transmission Date: 20150326
  Serious: Yes (Other)
  Sender: FDA-Public Use
  Company Number: BR-PFIZER INC-2014103742

PATIENT
  Age: 56 Year
  Sex: Female
  Weight: 80 kg

DRUGS (11)
  1. ATENOLOL. [Suspect]
     Active Substance: ATENOLOL
     Dosage: 50 MG, DAILY
     Route: 048
     Dates: end: 1998
  2. TENORETIC [Suspect]
     Active Substance: ATENOLOL\CHLORTHALIDONE
     Dosage: 50+12.5 MG, DAILY
     Route: 048
     Dates: end: 201301
  3. ATENOLOL. [Suspect]
     Active Substance: ATENOLOL
     Indication: MITRAL VALVE PROLAPSE
     Dosage: 25 MG, 1X/DAY
     Route: 048
  4. GLIFAGE [Suspect]
     Active Substance: METFORMIN HYDROCHLORIDE
     Indication: GLUCOSE TOLERANCE IMPAIRED
     Dosage: 500 MG, 2X/DAY
     Route: 048
     Dates: start: 201301
  5. TENORETIC [Suspect]
     Active Substance: ATENOLOL\CHLORTHALIDONE
     Dosage: 50+12.5 MG, 1/2 TABLET, TWO TIMES A DAY
     Route: 048
     Dates: start: 201406
  6. LEXOTAN [Concomitant]
     Active Substance: BROMAZEPAM
     Indication: BLOOD PRESSURE INCREASED
  7. ATENOLOL. [Suspect]
     Active Substance: ATENOLOL
     Dosage: 50 MG, DAILY
     Route: 048
     Dates: start: 2011
  8. TENORETIC [Suspect]
     Active Substance: ATENOLOL\CHLORTHALIDONE
     Indication: MITRAL VALVE PROLAPSE
     Dosage: 50+12.5 MG, DAILY
     Route: 048
     Dates: start: 1998, end: 2011
  9. TENORETIC [Suspect]
     Active Substance: ATENOLOL\CHLORTHALIDONE
     Dosage: 50+12.5 MG, 1/2 TABLET, AS NEEDED
     Route: 048
     Dates: start: 2013, end: 2013
  10. LEXOTAN [Concomitant]
     Active Substance: BROMAZEPAM
     Indication: PANIC DISORDER
     Dosage: 3 MG 1/2 TABLET/AS REQUIRED
     Route: 048
  11. TENORETIC [Suspect]
     Active Substance: ATENOLOL\CHLORTHALIDONE
     Dosage: 50+12.5 MG, DAILY
     Route: 048
     Dates: start: 2013

REACTIONS (20)
  - Heart rate increased [Recovered/Resolved]
  - Gastrooesophageal reflux disease [Not Recovered/Not Resolved]
  - Off label use [Not Recovered/Not Resolved]
  - Drug dose omission [Not Recovered/Not Resolved]
  - Weight increased [Recovered/Resolved]
  - Apnoea [Not Recovered/Not Resolved]
  - Swelling [Recovered/Resolved]
  - Eczema [Recovered/Resolved]
  - Panic attack [Recovered/Resolved]
  - Blood uric acid increased [Unknown]
  - Influenza [Not Recovered/Not Resolved]
  - Tooth fracture [Not Recovered/Not Resolved]
  - Glucose tolerance impaired [Recovered/Resolved]
  - Hot flush [Not Recovered/Not Resolved]
  - Blood pressure increased [Recovered/Resolved]
  - Arrhythmia [Recovered/Resolved]
  - Panic disorder [Not Recovered/Not Resolved]
  - Nausea [Not Recovered/Not Resolved]
  - Off label use [Recovered/Resolved]
  - Intentional product misuse [Not Recovered/Not Resolved]

NARRATIVE: CASE EVENT DATE: 2009
